FAERS Safety Report 5383487-X (Version None)
Quarter: 2007Q3

REPORT INFORMATION
  Report Type: 
  Country: None (occurrence: None)
  Receive Date: 20070710
  Receipt Date: 20070627
  Transmission Date: 20080115
  Serious: Yes (Hospitalization)
  Sender: FDA-Public Use
  Company Number: JP-SHR-JP-2007-024424

PATIENT
  Age: 84 Year
  Sex: Female

DRUGS (10)
  1. SOTALOL HCL [Suspect]
     Indication: VENTRICULAR TACHYCARDIA
     Dosage: 40 MG, 2X/DAY
     Route: 048
     Dates: start: 20020818, end: 20030802
  2. SOTALOL HCL [Suspect]
     Dosage: 40 MG, 1X/DAY
     Route: 048
     Dates: start: 20030803, end: 20030806
  3. SOTALOL HCL [Suspect]
     Dosage: 40 MG, 2X/DAY
     Route: 048
     Dates: start: 20030807, end: 20030831
  4. BUFFERIN [Concomitant]
     Dosage: 81 MG, 1X/DAY
     Route: 048
     Dates: start: 20020811
  5. BLOPRESS [Concomitant]
     Dosage: 8 MG, 1X/DAY
     Route: 048
     Dates: start: 20020811
  6. LASIX [Concomitant]
     Dosage: 20 MG, 1X/DAY
     Route: 048
     Dates: start: 20020811
  7. ALDACTONE [Concomitant]
     Dosage: 25 MG, 1X/DAY
     Route: 048
     Dates: start: 20020811
  8. ITOROL [Concomitant]
     Dosage: 40 MG, 1X/DAY
     Route: 048
     Dates: start: 20020811
  9. GASTER D [Concomitant]
     Dosage: 20 MG, 1X/DAY
     Route: 048
     Dates: start: 20020811
  10. ANTIBIOTICS [Concomitant]

REACTIONS (2)
  - ANOREXIA [None]
  - PSEUDOMEMBRANOUS COLITIS [None]
